FAERS Safety Report 9558381 (Version 1)
Quarter: 2013Q3

REPORT INFORMATION
  Report Type: Spontaneous
  Country: SE (occurrence: SE)
  Receive Date: 20130926
  Receipt Date: 20130926
  Transmission Date: 20140515
  Serious: Yes (Hospitalization, Other)
  Sender: FDA-Public Use
  Company Number: SE-TEVA-432700ISR

PATIENT
  Sex: Female

DRUGS (1)
  1. SERTRALIN [Suspect]
     Dosage: 50 MILLIGRAM DAILY;
     Route: 048
     Dates: start: 201307

REACTIONS (1)
  - Erythema multiforme [Unknown]
